FAERS Safety Report 16818251 (Version 1)
Quarter: 2019Q3

REPORT INFORMATION
  Report Type: Spontaneous
  Country: JP (occurrence: JP)
  Receive Date: 20190917
  Receipt Date: 20190917
  Transmission Date: 20191005
  Serious: Yes (Hospitalization)
  Sender: FDA-Public Use
  Company Number: JP-BAXTER-2019BAX017976

PATIENT
  Sex: Female

DRUGS (4)
  1. DOXORUBICIN HYDROCHLORIDE. [Suspect]
     Active Substance: DOXORUBICIN HYDROCHLORIDE
     Indication: BREAST CANCER
     Dosage: AC THERAPY
     Route: 065
  2. DOXORUBICIN HYDROCHLORIDE. [Suspect]
     Active Substance: DOXORUBICIN HYDROCHLORIDE
     Dosage: DURATION OF 1 CYCLE OF AC THERAPY WAS SHORTENED FROM 3 WEEKS TO 2 WEEKS
     Route: 065
     Dates: start: 2016, end: 2016
  3. ENDOXAN 1G [Suspect]
     Active Substance: CYCLOPHOSPHAMIDE
     Dosage: DURATION OF 1 CYCLE OF AC THERAPY WAS SHORTENED FROM 3 WEEKS TO 2 WEEKS
     Route: 065
     Dates: start: 2016, end: 2016
  4. ENDOXAN 1G [Suspect]
     Active Substance: CYCLOPHOSPHAMIDE
     Indication: BREAST CANCER
     Dosage: AC THERAPY
     Route: 065

REACTIONS (1)
  - Lung disorder [Recovered/Resolved]
